FAERS Safety Report 23014430 (Version 2)
Quarter: 2024Q1

REPORT INFORMATION
  Report Type: Spontaneous
  Country: SK (occurrence: SK)
  Receive Date: 20231002
  Receipt Date: 20240130
  Transmission Date: 20240410
  Serious: Yes (Other)
  Sender: FDA-Public Use
  Company Number: SK-Accord-381813

PATIENT
  Age: 20 Year
  Sex: Female

DRUGS (10)
  1. LACOSAMIDE [Suspect]
     Active Substance: LACOSAMIDE
     Indication: Partial seizures
  2. LEVETIRACETAM [Suspect]
     Active Substance: LEVETIRACETAM
     Indication: Partial seizures
  3. LAMOTRIGINE [Suspect]
     Active Substance: LAMOTRIGINE
     Indication: Partial seizures
  4. ZONISAMIDE [Concomitant]
     Active Substance: ZONISAMIDE
     Indication: Partial seizures
  5. CARBAMAZEPINE [Concomitant]
     Active Substance: CARBAMAZEPINE
     Indication: Partial seizures
  6. CENOBAMATE [Interacting]
     Active Substance: CENOBAMATE
     Indication: Mixed anxiety and depressive disorder
     Dates: start: 202208
  7. ESCITALOPRAM [Concomitant]
     Active Substance: ESCITALOPRAM OXALATE
     Indication: Mixed anxiety and depressive disorder
  8. CENOBAMATE [Interacting]
     Active Substance: CENOBAMATE
     Indication: Mixed anxiety and depressive disorder
  9. CENOBAMATE [Interacting]
     Active Substance: CENOBAMATE
     Indication: Mixed anxiety and depressive disorder
  10. CENOBAMATE [Interacting]
     Active Substance: CENOBAMATE
     Indication: Mixed anxiety and depressive disorder

REACTIONS (5)
  - Depression [Unknown]
  - Seizure [Unknown]
  - Suicidal ideation [Unknown]
  - Condition aggravated [Unknown]
  - Therapeutic product effect incomplete [Unknown]
